FAERS Safety Report 8325705-1 (Version None)
Quarter: 2012Q2

REPORT INFORMATION
  Report Type: 
  Country: None (occurrence: None)
  Receive Date: 20120501
  Receipt Date: 20120425
  Transmission Date: 20120825
  Serious: Yes (Death)
  Sender: FDA-Public Use
  Company Number: PHHY2012FR036167

PATIENT
  Age: 83 Year

DRUGS (1)
  1. OSLIF BREEZHALER [Suspect]
     Dosage: 1 DF, QD
     Dates: start: 20111103

REACTIONS (1)
  - MYOCARDIAL INFARCTION [None]
